FAERS Safety Report 8953102 (Version 2)
Quarter: 2014Q2

REPORT INFORMATION
  Report Type: Spontaneous
  Country: US (occurrence: US)
  Receive Date: 20121205
  Receipt Date: 20131024
  Transmission Date: 20141212
  Serious: No
  Sender: FDA-Public Use
  Company Number: US-PFIZER INC-2012302296

PATIENT
  Sex: 0

DRUGS (2)
  1. FAMOTIDINE [Suspect]
  2. SOLU-MEDROL [Suspect]

REACTIONS (1)
  - Hypersensitivity [Unknown]
